FAERS Safety Report 18836963 (Version 1)
Quarter: 2021Q1

REPORT INFORMATION
  Report Type: Spontaneous
  Country: US (occurrence: US)
  Receive Date: 20210203
  Receipt Date: 20210203
  Transmission Date: 20210419
  Serious: No
  Sender: FDA-Public Use
  Company Number: US-ALLERGAN-2025349US

PATIENT
  Age: 58 Year
  Sex: Female

DRUGS (13)
  1. OMEGA 3 [Concomitant]
     Active Substance: OMEGA-3 FATTY ACIDS
  2. MAGNESIUM [Concomitant]
     Active Substance: MAGNESIUM
  3. BOTOX COSMETIC [Suspect]
     Active Substance: ONABOTULINUMTOXINA
     Indication: SKIN WRINKLING
     Dosage: 8 UNITS, SINGLE
     Dates: start: 20200610, end: 20200610
  4. LISINOPRIL. [Concomitant]
     Active Substance: LISINOPRIL
     Indication: HYPERTENSION
  5. VITAMIN B12 [Concomitant]
     Active Substance: CYANOCOBALAMIN
  6. BOTOX COSMETIC [Suspect]
     Active Substance: ONABOTULINUMTOXINA
     Indication: SKIN WRINKLING
     Dosage: 6 UNITS, SINGLE
     Dates: start: 20200610, end: 20200610
  7. BOTOX COSMETIC [Suspect]
     Active Substance: ONABOTULINUMTOXINA
     Indication: SKIN WRINKLING
     Dosage: 6 UNITS, SINGLE
     Dates: start: 20200610, end: 20200610
  8. BOTOX COSMETIC [Suspect]
     Active Substance: ONABOTULINUMTOXINA
     Indication: SKIN WRINKLING
     Dosage: 7 UNITS, SINGLE
     Dates: start: 20200610, end: 20200610
  9. BOTOX COSMETIC [Suspect]
     Active Substance: ONABOTULINUMTOXINA
     Indication: SKIN WRINKLING
     Dosage: 24 UNITS, SINGLE
     Dates: start: 20200610, end: 20200610
  10. BOTOX COSMETIC [Suspect]
     Active Substance: ONABOTULINUMTOXINA
     Indication: SKIN WRINKLING
     Dosage: 4 UNITS, SINGLE
     Dates: start: 20200610, end: 20200610
  11. TRAMADOL. [Concomitant]
     Active Substance: TRAMADOL
     Indication: PAIN
  12. BOTOX COSMETIC [Suspect]
     Active Substance: ONABOTULINUMTOXINA
     Indication: SKIN WRINKLING
     Dosage: 9 UNITS, SINGLE
     Dates: start: 20200610, end: 20200610
  13. ELETRIPTAN. [Concomitant]
     Active Substance: ELETRIPTAN
     Indication: HEADACHE

REACTIONS (3)
  - Off label use [Unknown]
  - Brow ptosis [Recovering/Resolving]
  - Product preparation error [Unknown]

NARRATIVE: CASE EVENT DATE: 20200630
